FAERS Safety Report 10238717 (Version 1)
Quarter: 2014Q2

REPORT INFORMATION
  Report Type: Spontaneous
  Country: US (occurrence: None)
  Receive Date: 20140613
  Receipt Date: 20140613
  Transmission Date: 20141212
  Serious: Yes (Other)
  Sender: FDA-Public Use
  Company Number: None

PATIENT
  Age: 43 Year
  Sex: Female
  Weight: 65 kg

DRUGS (1)
  1. RITUXAN [Suspect]
     Indication: LYMPHOPROLIFERATIVE DISORDER
     Route: 042
     Dates: start: 20140611, end: 20140611

REACTIONS (4)
  - Chills [None]
  - Dyspnoea [None]
  - Tachycardia [None]
  - Infusion related reaction [None]
